FAERS Safety Report 5966110-2 (Version None)
Quarter: 2008Q4

REPORT INFORMATION
  Report Type: 
  Country: None (occurrence: None)
  Receive Date: 20081125
  Receipt Date: 20081114
  Transmission Date: 20090506
  Serious: Yes (Other)
  Sender: FDA-Public Use
  Company Number: US-ELI_LILLY_AND_COMPANY-US200811003456

PATIENT
  Sex: Female

DRUGS (3)
  1. XIGRIS [Suspect]
     Dosage: UNK, UNK
     Route: 042
     Dates: start: 20081101
  2. VERSED [Concomitant]
     Route: 042
  3. MORPHINE [Concomitant]
     Route: 042

REACTIONS (5)
  - ABDOMINAL COMPARTMENT SYNDROME [None]
  - ACCIDENTAL OVERDOSE [None]
  - GASTRIC HAEMORRHAGE [None]
  - HAEMOGLOBIN DECREASED [None]
  - MEDICATION ERROR [None]
